FAERS Safety Report 7327960-3 (Version None)
Quarter: 2011Q1

REPORT INFORMATION
  Report Type: 
  Country: None (occurrence: None)
  Receive Date: 20110303
  Receipt Date: 20110228
  Transmission Date: 20110831
  Serious: Yes (Hospitalization, Other)
  Sender: FDA-Public Use
  Company Number: CZ-ELI_LILLY_AND_COMPANY-CZ201103000331

PATIENT
  Sex: Male

DRUGS (10)
  1. BETALOC ZOK [Concomitant]
     Indication: HYPERTENSION
     Dosage: UNK, UNK
     Route: 048
  2. DIGOXIN [Concomitant]
     Dosage: UNK, UNK
     Route: 048
  3. HUMALOG MIX 50/50 [Suspect]
     Indication: TYPE 2 DIABETES MELLITUS
     Dosage: 29 IU, 3/D
     Route: 058
     Dates: start: 20101130, end: 20110203
  4. ATORIS [Concomitant]
     Indication: HYPERLIPIDAEMIA
     Dosage: UNK, UNK
     Route: 048
  5. ANOPYRIN [Concomitant]
     Dosage: UNK, UNK
     Route: 048
  6. FENOFIX [Concomitant]
     Indication: HYPERLIPIDAEMIA
     Dosage: UNK, UNK
     Route: 048
  7. THEOPHYLLINE [Concomitant]
     Dosage: UNK, UNK
     Route: 048
  8. AMPRILAN [Concomitant]
     Dosage: UNK, UNK
     Route: 048
  9. FURON [Concomitant]
     Route: 048
  10. MILURIT [Concomitant]
     Indication: HYPERURICAEMIA
     Dosage: UNK, UNK
     Route: 048

REACTIONS (4)
  - DIABETES MELLITUS INADEQUATE CONTROL [None]
  - CONDITION AGGRAVATED [None]
  - INJECTION SITE ABSCESS [None]
  - KLEBSIELLA TEST POSITIVE [None]
